FAERS Safety Report 18493095 (Version 3)
Quarter: 2021Q2

REPORT INFORMATION
  Report Type: Report from Study
  Country: SE (occurrence: SE)
  Receive Date: 20201111
  Receipt Date: 20210519
  Transmission Date: 20210717
  Serious: Yes (Hospitalization, Other)
  Sender: FDA-Public Use
  Company Number: SE-SHIRE-SE201819085

PATIENT
  Age: 15 Year
  Sex: Female
  Weight: 98 kg

DRUGS (19)
  1. DYMISTA [Concomitant]
     Active Substance: AZELASTINE HYDROCHLORIDE\FLUTICASONE PROPIONATE
     Indication: HYPERSENSITIVITY
  2. TRANEXAM [Concomitant]
     Active Substance: TRANEXAMIC ACID
     Indication: HAEMOLYTIC ANAEMIA
  3. KARBAMID [Concomitant]
     Indication: HYPERSENSITIVITY
  4. VALACICLOVIR [Concomitant]
     Active Substance: VALACYCLOVIR HYDROCHLORIDE
     Indication: HERPES SIMPLEX
  5. FEXOFENADIN [Concomitant]
     Active Substance: FEXOFENADINE HYDROCHLORIDE
     Indication: HYPERSENSITIVITY
  6. PRILOCAINE [Concomitant]
     Active Substance: PRILOCAINE
     Indication: LOCAL ANAESTHESIA
  7. PARACETAMOL [Concomitant]
     Active Substance: ACETAMINOPHEN
     Indication: DYSMENORRHOEA
  8. HUMAN IMMUNOGLOBULIN; HYALURONIDASE [Suspect]
     Active Substance: HUMAN IMMUNOGLOBULIN G\HYALURONIDASE RECOMBINANT HUMAN
     Indication: IMMUNODEFICIENCY COMMON VARIABLE
     Dosage: 40 GRAM
     Route: 065
     Dates: start: 20180416, end: 20180416
  9. HUMAN IMMUNOGLOBULIN; HYALURONIDASE [Suspect]
     Active Substance: HUMAN IMMUNOGLOBULIN G\HYALURONIDASE RECOMBINANT HUMAN
     Dosage: 40 G, EVERY 3 WK
     Route: 058
     Dates: start: 20180507, end: 20180507
  10. MOMETASONFUROAT ABZ [Concomitant]
     Indication: HYPERSENSITIVITY
  11. SOLU?MEDROL [Concomitant]
     Active Substance: METHYLPREDNISOLONE SODIUM SUCCINATE
     Indication: PAROPHTHALMIA
  12. CELLCEPT [Concomitant]
     Active Substance: MYCOPHENOLATE MOFETIL\MYCOPHENOLATE MOFETIL HYDROCHLORIDE
     Indication: PAROPHTHALMIA
  13. LIDOKAIN [LIDOCAINE] [Concomitant]
     Indication: LOCAL ANAESTHESIA
  14. HYDROCORTISON [HYDROCORTISONE] [Concomitant]
     Indication: HYPERSENSITIVITY
  15. PREDNISOLONE. [Concomitant]
     Active Substance: PREDNISOLONE
     Indication: PAROPHTHALMIA
  16. HERACILLIN [FLUCLOXACILLIN MAGNESIUM] [Concomitant]
     Indication: IMPETIGO
  17. SALBUTAMOL [Concomitant]
     Active Substance: ALBUTEROL
     Indication: HYPERSENSITIVITY
  18. HUMIRA [Concomitant]
     Active Substance: ADALIMUMAB
     Indication: PAROPHTHALMIA
  19. ACICLOVIR [Concomitant]
     Active Substance: ACYCLOVIR
     Indication: PAROPHTHALMIA

REACTIONS (1)
  - Idiopathic orbital inflammation [Not Recovered/Not Resolved]

NARRATIVE: CASE EVENT DATE: 20180508
